FAERS Safety Report 8922388 (Version 2)
Quarter: 2012Q4

REPORT INFORMATION
  Report Type: 
  Country: SE (occurrence: SE)
  Receive Date: 20121123
  Receipt Date: 20121226
  Transmission Date: 20130627
  Serious: Yes (Hospitalization)
  Sender: FDA-Public Use
  Company Number: SE-JNJFOC-20121108823

PATIENT
  Age: 49 Year
  Sex: Male

DRUGS (4)
  1. SIMPONI [Suspect]
     Indication: ANKYLOSING SPONDYLITIS
     Route: 058
     Dates: start: 20110408, end: 20111017
  2. SALAZOPYRIN [Concomitant]
     Route: 065
  3. KETOPROFEN [Concomitant]
     Route: 065
  4. CITODON [Concomitant]
     Dosage: 500mg/30mg
     Route: 065

REACTIONS (2)
  - Pneumonia [Recovered/Resolved]
  - Hepatic function abnormal [Unknown]
